FAERS Safety Report 7161423-3 (Version None)
Quarter: 2010Q4

REPORT INFORMATION
  Report Type: 
  Country: None (occurrence: None)
  Receive Date: 20101215
  Receipt Date: 20101206
  Transmission Date: 20110411
  Serious: Yes (Hospitalization)
  Sender: FDA-Public Use
  Company Number: US-TEVA-258692USA

PATIENT
  Sex: Male

DRUGS (2)
  1. ISONIAZID [Suspect]
     Route: 048
  2. BACILLUS CALMETTE-GUERIN (BCG) [Suspect]
     Route: 043

REACTIONS (4)
  - ASTHENIA [None]
  - EPIDIDYMITIS [None]
  - HYPERHIDROSIS [None]
  - LETHARGY [None]
